FAERS Safety Report 23688971 (Version 1)
Quarter: 2024Q1

REPORT INFORMATION
  Report Type: Spontaneous
  Country: PT (occurrence: PT)
  Receive Date: 20240329
  Receipt Date: 20240329
  Transmission Date: 20240409
  Serious: Yes (Death, Other)
  Sender: FDA-Public Use
  Company Number: None

PATIENT

DRUGS (65)
  1. DUTASTERIDE [Suspect]
     Active Substance: DUTASTERIDE
     Dosage: 100 MG
     Route: 065
  2. ASPIRIN [Suspect]
     Active Substance: ASPIRIN
     Dosage: 5 MG
     Route: 065
  3. ASPIRIN [Suspect]
     Active Substance: ASPIRIN
     Dosage: 100 MG
     Route: 065
  4. PITAVASTATIN [Suspect]
     Active Substance: PITAVASTATIN
     Route: 065
  5. HYDROCHLOROTHIAZIDE [Suspect]
     Active Substance: HYDROCHLOROTHIAZIDE
     Route: 065
  6. BISOPROLOL FUMARATE [Suspect]
     Active Substance: BISOPROLOL FUMARATE
     Route: 065
  7. CHOLECALCIFEROL [Suspect]
     Active Substance: CHOLECALCIFEROL
     Dosage: 50 G
     Route: 065
  8. CODEINE SULFATE [Suspect]
     Active Substance: CODEINE SULFATE
     Route: 065
  9. PRAVASTATIN [Suspect]
     Active Substance: PRAVASTATIN
     Route: 065
  10. SERTRALINE HYDROCHLORIDE [Suspect]
     Active Substance: SERTRALINE HYDROCHLORIDE
     Route: 065
  11. BUPRENORPHINE [Suspect]
     Active Substance: BUPRENORPHINE
     Dosage: 35 G, 24D
     Route: 062
  12. TAMSULOSIN HYDROCHLORIDE [Suspect]
     Active Substance: TAMSULOSIN HYDROCHLORIDE
     Route: 065
  13. DONEPEZIL [Suspect]
     Active Substance: DONEPEZIL
     Dosage: 5 MG
     Route: 048
  14. PENTAZOCINE [Suspect]
     Active Substance: PENTAZOCINE
     Route: 065
  15. ESCHERICHIA COLI [Suspect]
     Active Substance: ESCHERICHIA COLI
     Route: 065
  16. ENOXAPARIN SODIUM [Suspect]
     Active Substance: ENOXAPARIN SODIUM
     Route: 065
  17. FLUVASTATIN [Suspect]
     Active Substance: FLUVASTATIN SODIUM
     Route: 065
  18. IODINE [Suspect]
     Active Substance: IODINE
     Route: 065
  19. EZETIMIBE [Suspect]
     Active Substance: EZETIMIBE
     Route: 048
  20. EXEMESTANE [Suspect]
     Active Substance: EXEMESTANE
     Route: 065
  21. RIBAVIRIN [Suspect]
     Active Substance: RIBAVIRIN
     Route: 065
  22. HYDROMORPHONE HYDROCHLORIDE [Suspect]
     Active Substance: HYDROMORPHONE HYDROCHLORIDE
     Route: 065
  23. ATORVASTATIN CALCIUM [Suspect]
     Active Substance: ATORVASTATIN CALCIUM
     Route: 065
  24. ZOLEDRONIC ACID [Suspect]
     Active Substance: ZOLEDRONIC ACID
     Route: 065
  25. XYZAL [Suspect]
     Active Substance: LEVOCETIRIZINE DIHYDROCHLORIDE
     Dosage: 5 MG
     Route: 065
  26. TRAMADOL HYDROCHLORIDE [Suspect]
     Active Substance: TRAMADOL HYDROCHLORIDE
     Route: 065
  27. ESOMEPRAZOLE [Suspect]
     Active Substance: ESOMEPRAZOLE
     Route: 065
  28. ALISKIREN [Suspect]
     Active Substance: ALISKIREN
     Route: 065
  29. LEDIPASVIR [Suspect]
     Active Substance: LEDIPASVIR
     Route: 065
  30. TOCILIZUMAB [Suspect]
     Active Substance: TOCILIZUMAB
     Route: 065
  31. POTASSIUM IODIDE [Suspect]
     Active Substance: POTASSIUM IODIDE
     Route: 065
  32. FLUOXETINE [Suspect]
     Active Substance: FLUOXETINE HYDROCHLORIDE
     Route: 065
  33. ANASTROZOLE [Suspect]
     Active Substance: ANASTROZOLE
     Route: 065
  34. NORFLOXACIN [Suspect]
     Active Substance: NORFLOXACIN
     Route: 065
  35. SODIUM PICOSULFATE [Suspect]
     Active Substance: SODIUM PICOSULFATE
     Dosage: 35 G
     Route: 065
  36. CODEINE PHOSPHATE [Suspect]
     Active Substance: CODEINE PHOSPHATE
     Route: 065
  37. VERAPAMIL HYDROCHLORIDE [Suspect]
     Active Substance: VERAPAMIL HYDROCHLORIDE
     Route: 065
  38. DOCETAXEL [Suspect]
     Active Substance: DOCETAXEL\DOCETAXEL ANHYDROUS
     Dosage: 100 MG
     Route: 065
  39. SIMVASTATIN [Suspect]
     Active Substance: SIMVASTATIN
     Route: 048
  40. BISOPROLOL [Suspect]
     Active Substance: BISOPROLOL\BISOPROLOL FUMARATE
     Route: 065
  41. PREGABALIN [Suspect]
     Active Substance: PREGABALIN
     Dosage: 120 MG
     Route: 065
  42. PREGABALIN [Suspect]
     Active Substance: PREGABALIN
     Dosage: 50 MG
     Route: 065
  43. ACETAMINOPHEN [Suspect]
     Active Substance: ACETAMINOPHEN
     Route: 065
  44. INDOMETHACIN [Suspect]
     Active Substance: INDOMETHACIN
     Route: 065
  45. VORTIOXETINE [Suspect]
     Active Substance: VORTIOXETINE
     Route: 065
  46. TELMISARTAN [Suspect]
     Active Substance: TELMISARTAN
     Route: 065
  47. CELECOXIB [Suspect]
     Active Substance: CELECOXIB
     Dosage: 100 MG
     Route: 065
  48. MIRTAZAPINE [Suspect]
     Active Substance: MIRTAZAPINE
     Route: 065
  49. DILTIAZEM HYDROCHLORIDE [Suspect]
     Active Substance: DILTIAZEM HYDROCHLORIDE
     Route: 065
  50. DOMPERIDONE MALEATE [Suspect]
     Active Substance: DOMPERIDONE MALEATE
     Route: 065
  51. NITROGLYCERIN [Suspect]
     Active Substance: NITROGLYCERIN
     Route: 065
  52. ESCITALOPRAM OXALATE [Suspect]
     Active Substance: ESCITALOPRAM OXALATE
     Dosage: 5 MG
     Route: 065
  53. ADALIMUMAB [Suspect]
     Active Substance: ADALIMUMAB\ISOPROPYL ALCOHOL
     Dosage: 35 G
     Route: 065
  54. VENLAFAXINE HCL [Suspect]
     Active Substance: VENLAFAXINE HYDROCHLORIDE
     Route: 065
  55. IBANDRONIC ACID [Suspect]
     Active Substance: IBANDRONIC ACID
     Route: 065
  56. HUMAN IMMUNOGLOBULIN G [Suspect]
     Active Substance: HUMAN IMMUNOGLOBULIN G
     Dosage: 50 MG
     Route: 065
  57. LETROZOLE [Suspect]
     Active Substance: LETROZOLE
     Route: 065
  58. PENTOXIFYLLINE [Suspect]
     Active Substance: PENTOXIFYLLINE
     Route: 065
  59. ETANERCEPT [Suspect]
     Active Substance: ETANERCEPT
     Route: 065
  60. FENOFIBRATE [Suspect]
     Active Substance: FENOFIBRATE
     Route: 065
  61. BRINZOLAMIDE [Suspect]
     Active Substance: BRINZOLAMIDE
     Dosage: 100 MG
     Route: 065
  62. CILAZAPRIL ANHYDROUS [Suspect]
     Active Substance: CILAZAPRIL ANHYDROUS
     Route: 065
  63. IMATINIB [Suspect]
     Active Substance: IMATINIB
     Route: 065
  64. ACECLOFENAC [Suspect]
     Active Substance: ACECLOFENAC
     Route: 065
  65. MYCOPHENOLIC ACID [Suspect]
     Active Substance: MYCOPHENOLIC ACID
     Route: 065

REACTIONS (2)
  - Haemorrhagic stroke [Fatal]
  - Tachycardia [Fatal]
